FAERS Safety Report 6196227-1 (Version None)
Quarter: 2009Q2

REPORT INFORMATION
  Report Type: 
  Country: None (occurrence: None)
  Receive Date: 20090520
  Receipt Date: 20050527
  Transmission Date: 20091009
  Serious: Yes (Other)
  Sender: FDA-Public Use
  Company Number: GB-SOLVAY-00309002490

PATIENT
  Age: 83 Year
  Sex: Female

DRUGS (1)
  1. CREON [Suspect]
     Indication: PANCREATIC NEOPLASM
     Dosage: DAILY DOSE:  ABOUT 3/DAY
     Route: 065
     Dates: start: 20041101

REACTIONS (3)
  - GASTROINTESTINAL INFLAMMATION [None]
  - HAEMORRHAGE [None]
  - LARGE INTESTINAL HAEMORRHAGE [None]
